FAERS Safety Report 9109723 (Version 1)
Quarter: 2013Q1

REPORT INFORMATION
  Report Type: Spontaneous
  Country: US (occurrence: US)
  Receive Date: 20130222
  Receipt Date: 20130222
  Transmission Date: 20140127
  Serious: Yes (Other)
  Sender: FDA-Public Use
  Company Number: US-ASTRAZENECA-2013SE10643

PATIENT
  Age: 75 Year
  Sex: Female
  Weight: 72.6 kg

DRUGS (10)
  1. CRESTOR [Suspect]
     Indication: BLOOD CHOLESTEROL INCREASED
     Route: 048
     Dates: end: 200903
  2. CRESTOR [Suspect]
     Indication: BLOOD CHOLESTEROL INCREASED
     Route: 048
     Dates: start: 200903
  3. LISINOPRIL [Concomitant]
     Indication: HYPERTENSION
     Route: 048
  4. COREG [Concomitant]
     Indication: MYOCARDIAL INFARCTION
     Route: 048
     Dates: start: 2009
  5. AMIODARONE [Concomitant]
     Indication: HEART RATE
     Route: 048
  6. FOLIC ACID [Concomitant]
     Route: 048
  7. BUMEX [Concomitant]
     Dosage: 1-2 TABS DAILY
     Route: 048
  8. POTASSIUM CHLORIDE [Concomitant]
     Route: 048
  9. MULTIVITAMINS [Concomitant]
  10. DIURETICS [Concomitant]

REACTIONS (2)
  - Myocardial infarction [Recovered/Resolved]
  - Off label use [Unknown]
